FAERS Safety Report 6583507-0 (Version None)
Quarter: 2010Q1

REPORT INFORMATION
  Report Type: 
  Country: None (occurrence: None)
  Receive Date: 20100212
  Receipt Date: 20100212
  Transmission Date: 20100710
  Serious: No
  Sender: FDA-Public Use
  Company Number: None

PATIENT
  Age: 62 Year
  Sex: Male
  Weight: 88 kg

DRUGS (2)
  1. RIFAMPIN [Suspect]
     Indication: LOCALISED INFECTION
     Dosage: 300 MG BID PO
     Route: 048
     Dates: start: 20090813, end: 20090817
  2. SULFAMETHOXAZOLE AND TRIMETHOPRIM [Suspect]
     Indication: LOCALISED INFECTION
     Dosage: 1 TAB BID PO
     Route: 048
     Dates: start: 20090813, end: 20090817

REACTIONS (1)
  - AZOTAEMIA [None]
